FAERS Safety Report 18145441 (Version 1)
Quarter: 2020Q3

REPORT INFORMATION
  Report Type: Spontaneous
  Country: IT (occurrence: IT)
  Receive Date: 20200813
  Receipt Date: 20200813
  Transmission Date: 20201103
  Serious: Yes (Other)
  Sender: FDA-Public Use
  Company Number: IT-MYLANLABS-2020M1070287

PATIENT
  Age: 38 Year
  Sex: Male
  Weight: 90 kg

DRUGS (1)
  1. BUPRENORPHINE,NALOXONE MYLAN [Suspect]
     Active Substance: BUPRENORPHINE HYDROCHLORIDE\NALOXONE HYDROCHLORIDE
     Indication: DRUG DEPENDENCE
     Dosage: 16 MILLIGRAM, QD
     Route: 048
     Dates: start: 20200414

REACTIONS (2)
  - Insomnia [Not Recovered/Not Resolved]
  - Drug ineffective [Not Recovered/Not Resolved]

NARRATIVE: CASE EVENT DATE: 20200427
